FAERS Safety Report 18706688 (Version 1)
Quarter: 2021Q1

REPORT INFORMATION
  Report Type: Spontaneous
  Country: US (occurrence: US)
  Receive Date: 20210105
  Receipt Date: 20210105
  Transmission Date: 20210419
  Serious: No
  Sender: FDA-Public Use
  Company Number: None

PATIENT
  Age: 79 Year
  Sex: Male

DRUGS (1)
  1. EMPAGLIFLOZIN (EMPAGLIFLOZIN 25MG TAB) [Suspect]
     Active Substance: EMPAGLIFLOZIN
     Route: 048
     Dates: start: 20200901, end: 20200915

REACTIONS (3)
  - Pollakiuria [None]
  - Penile discomfort [None]
  - Thirst [None]

NARRATIVE: CASE EVENT DATE: 20200914
